FAERS Safety Report 17891202 (Version 1)
Quarter: 2020Q2

REPORT INFORMATION
  Report Type: Spontaneous
  Country: US (occurrence: US)
  Receive Date: 20200612
  Receipt Date: 20200612
  Transmission Date: 20200714
  Serious: No
  Sender: FDA-Public Use
  Company Number: US-PERRIGO-19US013679

PATIENT
  Age: 54 Year
  Sex: Female
  Weight: 58.96 kg

DRUGS (1)
  1. MINOXIDIL. [Suspect]
     Active Substance: MINOXIDIL
     Indication: ALOPECIA
     Dosage: SMALL AMOUNT, QD
     Route: 061
     Dates: start: 201910, end: 20191028

REACTIONS (3)
  - Product administered at inappropriate site [Recovered/Resolved]
  - Application site pruritus [Recovering/Resolving]
  - Application site inflammation [Recovering/Resolving]

NARRATIVE: CASE EVENT DATE: 201910
